FAERS Safety Report 6424451-9 (Version None)
Quarter: 2009Q4

REPORT INFORMATION
  Report Type: 
  Country: None (occurrence: None)
  Receive Date: 20091103
  Receipt Date: 20091026
  Transmission Date: 20100525
  Serious: Yes (Other)
  Sender: FDA-Public Use
  Company Number: PR-BAYER-200937629NA

PATIENT
  Age: 45 Year
  Sex: Male
  Weight: 127 kg

DRUGS (1)
  1. CIPRO [Suspect]
     Indication: ABSCESS
     Dates: start: 20090928, end: 20091011

REACTIONS (2)
  - INJURY [None]
  - MYALGIA [None]
